FAERS Safety Report 9054748 (Version 4)
Quarter: 2014Q1

REPORT INFORMATION
  Report Type: Spontaneous
  Country: US (occurrence: US)
  Receive Date: 20130208
  Receipt Date: 20140207
  Transmission Date: 20141002
  Serious: Yes (Other)
  Sender: FDA-Public Use
  Company Number: US-PFIZER INC-2013045210

PATIENT
  Age: 83 Year
  Sex: Female
  Weight: 49.89 kg

DRUGS (2)
  1. XALATAN [Suspect]
     Indication: INTRAOCULAR PRESSURE INCREASED
     Dosage: UNK
  2. XALATAN [Suspect]
     Dosage: UNK
     Dates: start: 2008

REACTIONS (2)
  - Bronchitis [Unknown]
  - Seasonal allergy [Unknown]
